FAERS Safety Report 10936874 (Version 2)
Quarter: 2015Q2

REPORT INFORMATION
  Report Type: Spontaneous
  Country: US (occurrence: US)
  Receive Date: 20150321
  Receipt Date: 20150525
  Transmission Date: 20150821
  Serious: No
  Sender: FDA-Public Use
  Company Number: US-JNJFOC-20140716741

PATIENT
  Sex: Female

DRUGS (7)
  1. SULFAMETHOXAZOLE-TRIMETHOPRIM (SMZ) [Suspect]
     Active Substance: SULFAMETHOXAZOLE\TRIMETHOPRIM
     Indication: URINARY TRACT INFECTION
     Route: 048
  2. SYNTHROID [Suspect]
     Active Substance: LEVOTHYROXINE SODIUM
     Indication: HYPOTHYROIDISM
     Route: 048
  3. PRENATAL VITAMINS [Concomitant]
     Active Substance: VITAMINS
     Route: 065
  4. TOPAMAX [Suspect]
     Active Substance: TOPIRAMATE
     Indication: SEIZURE
     Route: 048
  5. LAMICTAL [Suspect]
     Active Substance: LAMOTRIGINE
     Indication: SEIZURE
     Route: 048
  6. FOLIC ACID. [Concomitant]
     Active Substance: FOLIC ACID
     Route: 065
  7. IRON [Concomitant]
     Active Substance: IRON
     Route: 065

REACTIONS (1)
  - Exposure during pregnancy [Recovered/Resolved]
